FAERS Safety Report 11096612 (Version 1)
Quarter: 2015Q2

REPORT INFORMATION
  Report Type: Spontaneous
  Country: GB (occurrence: GB)
  Receive Date: 20150507
  Receipt Date: 20150507
  Transmission Date: 20150821
  Serious: Yes (Other)
  Sender: FDA-Public Use
  Company Number: GB-TEVA-559999ACC

PATIENT
  Sex: Female

DRUGS (1)
  1. TRIMETHOPRIM. [Suspect]
     Active Substance: TRIMETHOPRIM
     Indication: INFECTION

REACTIONS (6)
  - Headache [Unknown]
  - Hyperhidrosis [Unknown]
  - Inflammation [Unknown]
  - Tremor [Unknown]
  - Hypersensitivity [Unknown]
  - Pyrexia [Unknown]
